FAERS Safety Report 9056374 (Version 1)
Quarter: 2013Q1

REPORT INFORMATION
  Report Type: Report from Study
  Country: DE (occurrence: DE)
  Receive Date: 20130204
  Receipt Date: 20130204
  Transmission Date: 20140127
  Serious: Yes (Other)
  Sender: FDA-Public Use
  Company Number: DE-ABBOTT-13P-062-1042799-00

PATIENT
  Age: 42 Year
  Sex: Female
  Weight: 56 kg

DRUGS (1)
  1. HUMIRA [Suspect]
     Indication: PSORIATIC ARTHROPATHY
     Route: 058
     Dates: start: 20100621, end: 20130102

REACTIONS (2)
  - Finger amputation [Not Recovered/Not Resolved]
  - Accident [Unknown]
